FAERS Safety Report 14045217 (Version 1)
Quarter: 2017Q4

REPORT INFORMATION
  Report Type: Spontaneous
  Country: US (occurrence: US)
  Receive Date: 20171005
  Receipt Date: 20171005
  Transmission Date: 20180321
  Serious: No
  Sender: FDA-Public Use
  Company Number: US-INDIVIOR LIMITED-INDV-102286-2017

PATIENT
  Sex: Male

DRUGS (2)
  1. SUBOXONE [Suspect]
     Active Substance: BUPRENORPHINE HYDROCHLORIDE\NALOXONE HYDROCHLORIDE
     Indication: DRUG USE DISORDER
     Dosage: 8 MG, BID
     Route: 065
     Dates: start: 20170524, end: 201705
  2. SUBOXONE [Suspect]
     Active Substance: BUPRENORPHINE HYDROCHLORIDE\NALOXONE HYDROCHLORIDE
     Dosage: 1/2 AN 8MG  FILM , Q 12 HOURS
     Route: 065
     Dates: start: 201705

REACTIONS (6)
  - Nausea [Unknown]
  - Oropharyngeal pain [Unknown]
  - Product use issue [Unknown]
  - Euphoric mood [Unknown]
  - Product preparation error [Unknown]
  - Intentional underdose [Unknown]

NARRATIVE: CASE EVENT DATE: 201705
